FAERS Safety Report 4639112-6 (Version None)
Quarter: 2005Q2

REPORT INFORMATION
  Report Type: 
  Country: None (occurrence: None)
  Receive Date: 20050418
  Receipt Date: 20050331
  Transmission Date: 20051028
  Serious: Yes (Life-Threatening, Hospitalization)
  Sender: FDA-Public Use
  Company Number: DSA_26075_2005

PATIENT
  Age: 67 Year
  Sex: Female

DRUGS (8)
  1. ENALAPRIL MALEATE [Suspect]
     Indication: ANGIOPATHY
     Dosage: 5 MG BID PO
     Route: 048
     Dates: end: 20030101
  2. ENALAPRIL MALEATE [Suspect]
     Indication: ANGIOPATHY
     Dosage: 5 MG BID PO
     Route: 048
  3. BISOPROLOL FUMARATE [Suspect]
     Indication: ANGIOPATHY
     Dosage: 5 MG Q DAY PO
     Route: 048
     Dates: start: 20030101
  4. BISOPROLOL FUMARATE [Suspect]
     Indication: ANGIOPATHY
     Dosage: 5 MG Q DAY PO
     Route: 048
  5. BUMETANIDE [Suspect]
     Dosage: 2 MG Q DAY PO
     Route: 048
     Dates: end: 20030101
  6. BUMETANIDE [Suspect]
     Indication: ANGIOPATHY
     Dosage: 2 MG Q DAY PO
     Route: 048
  7. ISOSORBIDE MONONITRATE [Suspect]
     Indication: ANGIOPATHY
     Dosage: DF
     Dates: end: 20030101
  8. ISOSORBIDE MONONITRATE [Suspect]
     Indication: ANGIOPATHY
     Dosage: DF

REACTIONS (7)
  - BLOOD BICARBONATE DECREASED [None]
  - BRADYCARDIA [None]
  - COMA [None]
  - DIARRHOEA [None]
  - ELECTROCARDIOGRAM QRS COMPLEX PROLONGED [None]
  - HYPERKALAEMIA [None]
  - RENAL FAILURE ACUTE [None]
